FAERS Safety Report 12323018 (Version 1)
Quarter: 2016Q2

REPORT INFORMATION
  Report Type: Spontaneous
  Country: US (occurrence: US)
  Receive Date: 20160502
  Receipt Date: 20160502
  Transmission Date: 20160815
  Serious: No
  Sender: FDA-Public Use
  Company Number: US-JNJFOC-20160400286

PATIENT
  Sex: Female

DRUGS (1)
  1. STELARA [Suspect]
     Active Substance: USTEKINUMAB
     Indication: PSORIATIC ARTHROPATHY
     Route: 058
     Dates: start: 2016

REACTIONS (4)
  - Pain [Unknown]
  - Musculoskeletal chest pain [Unknown]
  - Therapeutic response decreased [Unknown]
  - Dactylitis [Unknown]

NARRATIVE: CASE EVENT DATE: 2016
